FAERS Safety Report 12886440 (Version 4)
Quarter: 2016Q4

REPORT INFORMATION
  Report Type: Spontaneous
  Country: US (occurrence: US)
  Receive Date: 20161026
  Receipt Date: 20161104
  Transmission Date: 20170207
  Serious: No
  Sender: FDA-Public Use
  Company Number: US-SHIRE-US201615667

PATIENT
  Sex: Male

DRUGS (1)
  1. VYVANSE [Suspect]
     Active Substance: LISDEXAMFETAMINE DIMESYLATE
     Indication: PRODUCT USED FOR UNKNOWN INDICATION
     Dosage: 30 MG, UNKNOWN
     Route: 048
     Dates: start: 20160928, end: 201610

REACTIONS (10)
  - Nausea [Unknown]
  - Headache [Unknown]
  - Drug dose omission [Unknown]
  - Increased appetite [Unknown]
  - Abdominal pain upper [Unknown]
  - Restlessness [Unknown]
  - Inappropriate schedule of drug administration [Recovered/Resolved]
  - Vomiting [Unknown]
  - Chromatopsia [Unknown]
  - Decreased appetite [Unknown]

NARRATIVE: CASE EVENT DATE: 20160928
